FAERS Safety Report 19904149 (Version 1)
Quarter: 2021Q4

REPORT INFORMATION
  Report Type: Spontaneous
  Country: US (occurrence: US)
  Receive Date: 20211001
  Receipt Date: 20211001
  Transmission Date: 20220303
  Serious: Yes (Hospitalization, Other)
  Sender: FDA-Public Use
  Company Number: 2021A526893

PATIENT
  Age: 71 Year
  Sex: Male
  Weight: 99 kg

DRUGS (13)
  1. LUMOXITI [Suspect]
     Active Substance: MOXETUMOMAB PASUDOTOX-TDFK
     Indication: Product used for unknown indication
     Dosage: 4.0MG UNKNOWN
     Route: 042
     Dates: start: 20210514, end: 20210523
  2. LUMOXITI [Suspect]
     Active Substance: MOXETUMOMAB PASUDOTOX-TDFK
     Indication: Hairy cell leukaemia
     Dosage: 4.0MG UNKNOWN
     Route: 042
     Dates: start: 20210514, end: 20210523
  3. ACYCLOVIR [Concomitant]
     Active Substance: ACYCLOVIR
     Indication: Antiviral prophylaxis
     Dosage: 800.0MG UNKNOWN
     Route: 048
     Dates: start: 20201210
  4. ALLOPURINOL [Concomitant]
     Active Substance: ALLOPURINOL
     Indication: Hyperuricaemia
     Dosage: 100.0MG UNKNOWN
     Route: 048
     Dates: start: 20210512
  5. ASPIRIN [Concomitant]
     Active Substance: ASPIRIN
     Indication: Coronary artery disease
     Dosage: 81.0MG UNKNOWN
     Route: 048
     Dates: start: 20210121
  6. DAPSONE [Concomitant]
     Active Substance: DAPSONE
     Indication: Antibiotic prophylaxis
     Dosage: 100.0MG UNKNOWN
     Route: 048
     Dates: start: 20201211
  7. GLIPIZIDE [Concomitant]
     Active Substance: GLIPIZIDE
     Indication: Diabetes mellitus
     Dosage: 100.0MG UNKNOWN
     Route: 048
     Dates: start: 20210129
  8. METOPROLOL [Concomitant]
     Active Substance: METOPROLOL
     Indication: Coronary artery disease
     Dosage: 100.0MG UNKNOWN
     Route: 048
     Dates: start: 20200108
  9. OMEPRAZOLE [Concomitant]
     Active Substance: OMEPRAZOLE
     Indication: Gastrooesophageal reflux disease
     Dosage: 20.0MG UNKNOWN
     Route: 048
     Dates: start: 20201207
  10. CEFTRIAXONE [Concomitant]
     Active Substance: CEFTRIAXONE
     Indication: Urinary tract infection
     Route: 042
     Dates: start: 20210525, end: 20210531
  11. CEFEPIME [Concomitant]
     Active Substance: CEFEPIME HYDROCHLORIDE
     Indication: Product used for unknown indication
     Route: 042
     Dates: start: 20210604, end: 20210609
  12. LEVOFLOXACIN [Concomitant]
     Active Substance: LEVOFLOXACIN
     Indication: Product used for unknown indication
     Route: 042
     Dates: start: 20210531, end: 20210603
  13. VANCOMYCIN [Concomitant]
     Active Substance: VANCOMYCIN
     Indication: Clostridium difficile infection
     Dosage: UNKNOWN
     Route: 048
     Dates: start: 20210604

REACTIONS (1)
  - Haemolytic uraemic syndrome [Recovering/Resolving]

NARRATIVE: CASE EVENT DATE: 20210523
